FAERS Safety Report 7555176-4 (Version None)
Quarter: 2011Q2

REPORT INFORMATION
  Report Type: 
  Country: None (occurrence: None)
  Receive Date: 20110617
  Receipt Date: 20110602
  Transmission Date: 20111010
  Serious: No
  Sender: FDA-Public Use
  Company Number: US-B.I. PHARMACEUTICALS,INC./RIDGEFIELD-2011-BP-14536BP

PATIENT
  Sex: Male

DRUGS (4)
  1. LOPRESSOR [Concomitant]
     Indication: HYPERTENSION
     Dates: start: 20010101
  2. PRADAXA [Suspect]
     Dosage: 150 MG
     Route: 048
     Dates: start: 20110601
  3. PRADAXA [Suspect]
     Indication: ATRIAL FIBRILLATION
     Dosage: 300 MG
     Route: 048
     Dates: start: 20110501, end: 20110601
  4. OMEPRAZOLE [Concomitant]
     Indication: DIVERTICULITIS
     Dates: start: 20030101

REACTIONS (3)
  - ABDOMINAL PAIN [None]
  - HEADACHE [None]
  - PARAESTHESIA [None]
